FAERS Safety Report 17132029 (Version 2)
Quarter: 2019Q4

REPORT INFORMATION
  Report Type: Spontaneous
  Country: BR (occurrence: BR)
  Receive Date: 20191210
  Receipt Date: 20191230
  Transmission Date: 20200122
  Serious: Yes (Death, Hospitalization, Other)
  Sender: FDA-Public Use
  Company Number: BR-AMGEN-BRASP2019204243

PATIENT
  Age: 58 Year
  Sex: Female
  Weight: 120 kg

DRUGS (2)
  1. ENBREL [Suspect]
     Active Substance: ETANERCEPT
     Indication: BONE DISORDER
     Dosage: UNK
     Route: 065
  2. ENBREL [Suspect]
     Active Substance: ETANERCEPT
     Indication: PSORIASIS
     Dosage: 1 INJECTION, 1X/WEEK
     Route: 065

REACTIONS (8)
  - Oxygen saturation decreased [Not Recovered/Not Resolved]
  - Cholelithiasis [Not Recovered/Not Resolved]
  - Pyrexia [Fatal]
  - Pneumonia [Fatal]
  - Sleep apnoea syndrome [Not Recovered/Not Resolved]
  - Sinusitis [Fatal]
  - Hypersensitivity [Unknown]
  - Wheezing [Not Recovered/Not Resolved]

NARRATIVE: CASE EVENT DATE: 2015
